FAERS Safety Report 10260443 (Version 2)
Quarter: 2015Q2

REPORT INFORMATION
  Report Type: Spontaneous
  Country: US (occurrence: US)
  Receive Date: 20140625
  Receipt Date: 20150609
  Transmission Date: 20150821
  Serious: Yes (Congenital Anomaly)
  Sender: FDA-Public Use
  Company Number: US-ELI_LILLY_AND_COMPANY-US201406008086

PATIENT

DRUGS (2)
  1. FLUOXETINE HYDROCHLORIDE. [Suspect]
     Active Substance: FLUOXETINE HYDROCHLORIDE
     Indication: PRODUCT USED FOR UNKNOWN INDICATION
     Dosage: UNK, UNKNOWN
     Route: 064
  2. TETRACYCLINE [Concomitant]
     Active Substance: TETRACYCLINE
     Indication: CHLAMYDIAL INFECTION
     Route: 065

REACTIONS (5)
  - Diaphragmatic paralysis [Unknown]
  - Mitral valve prolapse [Unknown]
  - Atrial septal defect [Unknown]
  - Congenital mitral valve incompetence [Unknown]
  - Foetal exposure during pregnancy [Recovered/Resolved]
